FAERS Safety Report 21357776 (Version 2)
Quarter: 2022Q3

REPORT INFORMATION
  Report Type: Spontaneous
  Country: US (occurrence: US)
  Receive Date: 20220921
  Receipt Date: 20220926
  Transmission Date: 20221027
  Serious: Yes (Other)
  Sender: FDA-Public Use
  Company Number: US-JNJFOC-20220937020

PATIENT

DRUGS (1)
  1. BENADRYL [Suspect]
     Active Substance: DIPHENHYDRAMINE HYDROCHLORIDE
     Indication: Product used for unknown indication
     Dosage: 30 BENADRYL PILLS
     Route: 065
     Dates: start: 20220916

REACTIONS (3)
  - Hallucinations, mixed [Not Recovered/Not Resolved]
  - Overdose [Unknown]
  - Nightmare [Unknown]

NARRATIVE: CASE EVENT DATE: 20220916
